FAERS Safety Report 6471452-0 (Version None)
Quarter: 2009Q4

REPORT INFORMATION
  Report Type: 
  Country: None (occurrence: None)
  Receive Date: 20091203
  Receipt Date: 20080415
  Transmission Date: 20100525
  Serious: Yes (Disabling)
  Sender: FDA-Public Use
  Company Number: MX-ELI_LILLY_AND_COMPANY-MX200803000064

PATIENT
  Sex: Male

DRUGS (6)
  1. HUMALOG MIX 75/25 [Suspect]
     Dosage: 30 IU, EACH MORNING
     Route: 065
     Dates: start: 20080226
  2. HUMALOG MIX 75/25 [Suspect]
     Dosage: 30 IU, EACH EVENING
     Route: 065
     Dates: start: 20080226
  3. HUMALOG MIX 75/25 [Suspect]
     Dosage: 10 IU, EACH MORNING
     Route: 065
  4. HUMALOG MIX 75/25 [Suspect]
     Dosage: 10 IU, EACH EVENING
     Route: 065
  5. ZACTOS [Concomitant]
     Dosage: 15 MG, DAILY (1/D)
     Route: 065
  6. VITAMINS WITH MINERALS [Concomitant]
     Dosage: UNK, UNKNOWN
     Route: 065

REACTIONS (5)
  - ABASIA [None]
  - ASTHENIA [None]
  - FATIGUE [None]
  - HYPERHIDROSIS [None]
  - PAIN IN EXTREMITY [None]
